FAERS Safety Report 5878999-6 (Version None)
Quarter: 2008Q3

REPORT INFORMATION
  Report Type: 
  Country: None (occurrence: None)
  Receive Date: 20080912
  Receipt Date: 20080905
  Transmission Date: 20090109
  Serious: Yes (Hospitalization)
  Sender: FDA-Public Use
  Company Number: DE-ABBOTT-08P-062-0474672-00

PATIENT
  Sex: Male

DRUGS (2)
  1. HUMIRA [Suspect]
     Indication: ANKYLOSING SPONDYLITIS
     Route: 058
     Dates: start: 20080623, end: 20080818
  2. ETORICOXIB [Concomitant]
     Indication: ANKYLOSING SPONDYLITIS
     Dosage: 90 MG DAILY
     Route: 048

REACTIONS (1)
  - ARTHRITIS [None]
